FAERS Safety Report 22299607 (Version 3)
Quarter: 2023Q2

REPORT INFORMATION
  Report Type: Report from Study
  Country: US (occurrence: US)
  Receive Date: 20230509
  Receipt Date: 20230615
  Transmission Date: 20230722
  Serious: Yes (Hospitalization, Other)
  Sender: FDA-Public Use
  Company Number: US-UCBSA-2023008092

PATIENT
  Age: 33 Year
  Sex: Female

DRUGS (3)
  1. FINTEPLA [Suspect]
     Active Substance: FENFLURAMINE
     Indication: Lennox-Gastaut syndrome
     Dosage: 2.2 MILLILITER, 2X/DAY (BID)
     Dates: start: 20230119
  2. FINTEPLA [Suspect]
     Active Substance: FENFLURAMINE
     Dosage: 3.3 MILLILITER, 2X/DAY (BID)
  3. FINTEPLA [Suspect]
     Active Substance: FENFLURAMINE
     Dosage: 2.7 MILLILITER, 2X/DAY (BID)

REACTIONS (5)
  - Pneumonia aspiration [Recovered/Resolved]
  - Gastrointestinal tube insertion [Recovered/Resolved]
  - Seizure [Unknown]
  - Somnolence [Not Recovered/Not Resolved]
  - Fatigue [Recovered/Resolved]

NARRATIVE: CASE EVENT DATE: 20230210
